FAERS Safety Report 23416319 (Version 2)
Quarter: 2024Q1

REPORT INFORMATION
  Report Type: Spontaneous
  Country: US (occurrence: US)
  Receive Date: 20240118
  Receipt Date: 20240227
  Transmission Date: 20240410
  Serious: Yes (Life-Threatening, Hospitalization, Other)
  Sender: FDA-Public Use
  Company Number: US-PFIZER INC-PV202400006596

PATIENT
  Age: 49 Year
  Sex: Female
  Weight: 104 kg

DRUGS (3)
  1. KETAMINE HYDROCHLORIDE [Suspect]
     Active Substance: KETAMINE HYDROCHLORIDE
     Indication: Sedation
     Dosage: 30 MG, (1 MG/KG)
     Route: 042
  2. KETAMINE HYDROCHLORIDE [Suspect]
     Active Substance: KETAMINE HYDROCHLORIDE
     Dosage: 70 MG, TITRATING TO DISSOCIATION
     Route: 042
  3. DIAZEPAM [Concomitant]
     Active Substance: DIAZEPAM
     Indication: Sedation
     Dosage: 2.5 MG
     Route: 042

REACTIONS (1)
  - Stress cardiomyopathy [Recovering/Resolving]
